FAERS Safety Report 19077822 (Version 1)
Quarter: 2021Q1

REPORT INFORMATION
  Report Type: Spontaneous
  Country: GB (occurrence: GB)
  Receive Date: 20210331
  Receipt Date: 20210331
  Transmission Date: 20210420
  Serious: Yes (Disabling, Other)
  Sender: FDA-Public Use
  Company Number: GB-MYLANLABS-2021M1018156

PATIENT
  Age: 69 Year
  Sex: Female
  Weight: 67.12 kg

DRUGS (1)
  1. AMLODIPINE [Suspect]
     Active Substance: AMLODIPINE BESYLATE
     Indication: HYPERTENSION
     Dosage: UNK
     Route: 048
     Dates: start: 20200401, end: 20200601

REACTIONS (1)
  - Cellulitis [Recovered/Resolved with Sequelae]

NARRATIVE: CASE EVENT DATE: 20200510
